FAERS Safety Report 10600760 (Version 2)
Quarter: 2014Q4

REPORT INFORMATION
  Report Type: Spontaneous
  Country: US (occurrence: US)
  Receive Date: 20141124
  Receipt Date: 20141124
  Transmission Date: 20150529
  Serious: Yes (Hospitalization)
  Sender: FDA-Public Use
  Company Number: US-CIPLA LTD.-2014US02001

PATIENT
  Age: 69 Year
  Sex: Female

DRUGS (2)
  1. ATENOLOL. [Suspect]
     Active Substance: ATENOLOL
  2. AMLODIPINE [Suspect]
     Active Substance: AMLODIPINE BESYLATE

REACTIONS (7)
  - Somnolence [Unknown]
  - Hypotension [Recovered/Resolved]
  - Hypokalaemia [Unknown]
  - Suicide attempt [Recovered/Resolved]
  - Overdose [Recovered/Resolved]
  - Ventricular fibrillation [Recovered/Resolved]
  - Vomiting [Unknown]
